FAERS Safety Report 7329541-4 (Version None)
Quarter: 2011Q1

REPORT INFORMATION
  Report Type: 
  Country: None (occurrence: None)
  Receive Date: 20110303
  Receipt Date: 20110224
  Transmission Date: 20110831
  Serious: Yes (Other)
  Sender: FDA-Public Use
  Company Number: US-CEPHALON-2011000989

PATIENT
  Age: 22 Year
  Sex: Male

DRUGS (1)
  1. FENTANYL BUCCAL TABLET (MANUFACTURER UNKNOWN) [Suspect]
     Route: 002

REACTIONS (4)
  - DRUG DIVERSION [None]
  - SOMNOLENCE [None]
  - DRUG ABUSE [None]
  - INCOHERENT [None]
